FAERS Safety Report 6376225-5 (Version None)
Quarter: 2009Q3

REPORT INFORMATION
  Report Type: 
  Country: None (occurrence: None)
  Receive Date: 20090925
  Receipt Date: 20080109
  Transmission Date: 20100115
  Serious: Yes (Other)
  Sender: FDA-Public Use
  Company Number: US-ASTRAZENECA-2007UW12855

PATIENT
  Age: 35 Year
  Sex: Male

DRUGS (8)
  1. SEROQUEL [Suspect]
     Indication: BIPOLAR DISORDER
     Route: 048
     Dates: start: 20051102, end: 20060613
  2. SEROQUEL [Suspect]
     Indication: DEPRESSION
     Route: 048
     Dates: start: 20051102, end: 20060613
  3. SEROQUEL [Suspect]
     Dosage: 275-400 MG
     Route: 048
     Dates: start: 20051128
  4. SEROQUEL [Suspect]
     Dosage: 275-400 MG
     Route: 048
     Dates: start: 20051128
  5. TRILEPTAL [Concomitant]
     Dates: start: 20051128
  6. LAMICTAL [Concomitant]
     Dates: start: 20051128
  7. DILAUDID [Concomitant]
     Dosage: 4 MG PRN
     Route: 048
     Dates: start: 20060427
  8. NEXIUM [Concomitant]
     Dates: start: 20060427

REACTIONS (3)
  - PANCREATIC PSEUDOCYST [None]
  - PANCREATITIS [None]
  - PANCREATITIS ACUTE [None]
